FAERS Safety Report 5309099-1 (Version None)
Quarter: 2007Q2

REPORT INFORMATION
  Report Type: 
  Country: None (occurrence: None)
  Receive Date: 20070418
  Receipt Date: 20070406
  Transmission Date: 20071010
  Serious: Yes (Death, Life-Threatening, Hospitalization)
  Sender: FDA-Public Use
  Company Number: 2007-156969-NL

PATIENT
  Age: 85 Year
  Sex: Male
  Weight: 53 kg

DRUGS (17)
  1. TICE BCG [Suspect]
     Indication: BLADDER CANCER
     Dosage: CFU INTRAVESICAL, FULL TO 1/3 DOSE STRENGTH
     Route: 043
     Dates: start: 20030226, end: 20050413
  2. INTRON A [Suspect]
     Indication: BLADDER CANCER
     Dosage: 50 MIU INTRAVESICAL
     Route: 043
     Dates: start: 20030226, end: 20050413
  3. DARVOCET-N 100 [Concomitant]
  4. LIPITOR [Concomitant]
  5. COREG [Concomitant]
  6. TORSEMIDE [Concomitant]
  7. LISINOPRIL [Concomitant]
  8. BENADRYL [Concomitant]
  9. TYLENOL [Concomitant]
  10. HALOG [Concomitant]
  11. ALLEGRA [Concomitant]
  12. PREDNISONE TAB [Concomitant]
  13. TOPICORT [Concomitant]
  14. NITROSTAT [Concomitant]
  15. HYDROCODONE [Concomitant]
  16. COLCHICINE [Concomitant]
  17. PLAQUENIL [Concomitant]

REACTIONS (10)
  - CARDIAC FAILURE [None]
  - CARDIOMYOPATHY [None]
  - CARDIOVASCULAR INSUFFICIENCY [None]
  - CONDITION AGGRAVATED [None]
  - MULTI-ORGAN FAILURE [None]
  - RENAL FAILURE [None]
  - RENAL FAILURE CHRONIC [None]
  - RESPIRATORY FAILURE [None]
  - SCLERODERMA [None]
  - TERMINAL STATE [None]
